FAERS Safety Report 16728740 (Version 3)
Quarter: 2019Q3

REPORT INFORMATION
  Report Type: Spontaneous
  Country: CZ (occurrence: CZ)
  Receive Date: 20190822
  Receipt Date: 20190924
  Transmission Date: 20191005
  Serious: Yes (Other)
  Sender: FDA-Public Use
  Company Number: PHHY2018CZ070372

PATIENT
  Age: 49 Year
  Sex: Male

DRUGS (2)
  1. INFLIXIMAB [Suspect]
     Active Substance: INFLIXIMAB
     Indication: SARCOIDOSIS
     Dosage: 4 MG/KG, CYCLIC (IN THE INTERVAL 0, 2, 6, 8 WEEKS, THEN EVERY 2 MONTHS)
     Route: 065
     Dates: start: 20151019
  2. METHOTREXATE. [Suspect]
     Active Substance: METHOTREXATE
     Indication: SARCOIDOSIS
     Dosage: UNK
     Route: 065
     Dates: start: 201308, end: 201309

REACTIONS (5)
  - Bone marrow failure [Unknown]
  - Upper respiratory tract infection [Unknown]
  - Renal impairment [Unknown]
  - Off label use [Unknown]
  - Product use in unapproved indication [Unknown]

NARRATIVE: CASE EVENT DATE: 201309
